FAERS Safety Report 7668286-8 (Version None)
Quarter: 2011Q3

REPORT INFORMATION
  Report Type: 
  Country: None (occurrence: None)
  Receive Date: 20110808
  Receipt Date: 20110803
  Transmission Date: 20111222
  Serious: Yes (Hospitalization)
  Sender: FDA-Public Use
  Company Number: FR-PFIZER INC-2010176232

PATIENT
  Age: 70 Year
  Sex: Female

DRUGS (6)
  1. OMEPRAZOLE [Suspect]
     Route: 048
  2. ALDACTONE [Suspect]
     Dosage: 75 MG DAILY
     Route: 048
  3. HERCEPTIN [Suspect]
     Indication: BREAST CANCER
     Dosage: UNK
     Route: 048
     Dates: start: 20080801
  4. MOTILIUM [Suspect]
     Dosage: 20 MG, UNK
     Route: 048
  5. ACETAMINOPHEN [Suspect]
     Route: 048
  6. LORAZEPAM [Suspect]
     Route: 048

REACTIONS (1)
  - LUNG DISORDER [None]
